FAERS Safety Report 13136387 (Version 1)
Quarter: 2017Q1

REPORT INFORMATION
  Report Type: Spontaneous
  Country: US (occurrence: US)
  Receive Date: 20170122
  Receipt Date: 20170122
  Transmission Date: 20170428
  Serious: No
  Sender: FDA-Public Use
  Company Number: US-009507513-1612USA014647

PATIENT
  Sex: Female

DRUGS (2)
  1. REVLIMID [Concomitant]
     Active Substance: LENALIDOMIDE
  2. INTRON A [Suspect]
     Active Substance: INTERFERON ALFA-2B
     Indication: PLASMA CELL MYELOMA
     Dosage: 0.05 ML TIW MON, WED, FRI
     Route: 023

REACTIONS (4)
  - Cognitive disorder [Unknown]
  - Incorrect drug administration duration [Unknown]
  - Memory impairment [Unknown]
  - Product use issue [Unknown]

NARRATIVE: CASE EVENT DATE: 2016
